FAERS Safety Report 19907240 (Version 3)
Quarter: 2022Q1

REPORT INFORMATION
  Report Type: Spontaneous
  Country: LV (occurrence: LV)
  Receive Date: 20210930
  Receipt Date: 20220108
  Transmission Date: 20220423
  Serious: Yes (Hospitalization, Other)
  Sender: FDA-Public Use
  Company Number: LV-SA-2021SA315255

PATIENT
  Age: 22 Year
  Sex: Female
  Weight: 58 kg

DRUGS (3)
  1. INSULIN GLARGINE [Suspect]
     Active Substance: INSULIN GLARGINE
     Indication: Type 1 diabetes mellitus
     Dosage: 28 IU ONCE DAILY IN THE EVENING
     Route: 058
  2. INSULIN ASPART [Suspect]
     Active Substance: INSULIN ASPART
     Indication: Type 1 diabetes mellitus
     Dosage: 10-12 DV OR 12-14 DV DEPENDING ON GLUCOSE LEVELS
     Route: 058
  3. FENOFIBRATE [Concomitant]
     Active Substance: FENOFIBRATE
     Indication: Hypertriglyceridaemia
     Dosage: 200 MG, QD

REACTIONS (20)
  - Liver injury [Recovering/Resolving]
  - Diabetic hepatopathy [Recovering/Resolving]
  - Non-alcoholic steatohepatitis [Recovering/Resolving]
  - Abdominal pain [Recovered/Resolved]
  - Nausea [Recovering/Resolving]
  - Vomiting [Recovered/Resolved]
  - Asthenia [Recovering/Resolving]
  - Decreased appetite [Recovering/Resolving]
  - Secretion discharge [Recovering/Resolving]
  - Hepatic cytolysis [Recovering/Resolving]
  - Hepatic function abnormal [Recovering/Resolving]
  - Pyoderma [Recovering/Resolving]
  - Scab [Recovering/Resolving]
  - Erythema [Recovering/Resolving]
  - Rash [Recovering/Resolving]
  - Purulent discharge [Recovering/Resolving]
  - Skin disorder [Recovering/Resolving]
  - Hyperglycaemia [Unknown]
  - Diabetes mellitus inadequate control [Unknown]
  - Pancreatitis acute [Recovering/Resolving]

NARRATIVE: CASE EVENT DATE: 20200906
